FAERS Safety Report 4691848-7 (Version None)
Quarter: 2005Q2

REPORT INFORMATION
  Report Type: 
  Country: None (occurrence: None)
  Receive Date: 20050608
  Receipt Date: 20040715
  Transmission Date: 20051028
  Serious: Yes (Other)
  Sender: FDA-Public Use
  Company Number: 358092

PATIENT

DRUGS (4)
  1. ACCUTANE [Suspect]
     Dates: start: 20030515, end: 20030615
  2. ISOTRETINOIN [Suspect]
     Dosage: ORAL
     Route: 048
     Dates: start: 20030615, end: 20031004
  3. ORAL CONTRACEPTIVE PILL (ORAL CONTRACEPTIVE NOS) [Concomitant]
  4. DEPO PROVERA (MEDROXYPROGESTERON ACETATE) [Concomitant]

REACTIONS (1)
  - ABORTION INDUCED [None]
